FAERS Safety Report 4315245-9 (Version None)
Quarter: 2004Q1

REPORT INFORMATION
  Report Type: 
  Country: None (occurrence: None)
  Receive Date: 20040309
  Receipt Date: 20040227
  Transmission Date: 20041129
  Serious: Yes (Hospitalization)
  Sender: FDA-Public Use
  Company Number: GB-JNJFOC-20040300013

PATIENT
  Age: 63 Year
  Sex: Female

DRUGS (11)
  1. REMICADE [Suspect]
     Indication: RHEUMATOID ARTHRITIS
     Dosage: INFLIXIMAB RESTARTED ONCE WRIST HAD HEALED
     Dates: start: 20030725
  2. SULFASALAZINE [Concomitant]
  3. METHOTREXATE [Concomitant]
  4. LANSOPRAZOLE [Concomitant]
  5. FOLIC ACID [Concomitant]
  6. FERROUS SULPHATE (FERROUS SULFATE) [Concomitant]
  7. RELIFLEX (NABUMETONE) [Concomitant]
  8. DIDRONEL [Concomitant]
  9. PREDNISOLONE [Concomitant]
  10. VITAMIN B12 [Concomitant]
  11. CALCIUM (CALCIUM) [Concomitant]

REACTIONS (2)
  - TRAUMATIC FRACTURE [None]
  - WRIST FRACTURE [None]
